FAERS Safety Report 4906462-5 (Version None)
Quarter: 2006Q1

REPORT INFORMATION
  Report Type: 
  Country: None (occurrence: None)
  Receive Date: 20060209
  Receipt Date: 20060130
  Transmission Date: 20060701
  Serious: Yes (Other)
  Sender: FDA-Public Use
  Company Number: 2006AC00204

PATIENT
  Age: 652 Month
  Sex: Male
  Weight: 72 kg

DRUGS (6)
  1. CRESTOR [Suspect]
     Indication: BLOOD CHOLESTEROL INCREASED
     Route: 048
     Dates: start: 20040301, end: 20050818
  2. CRESTOR [Interacting]
     Route: 048
     Dates: start: 20060101
  3. EZETIMIBE [Interacting]
     Indication: BLOOD CHOLESTEROL INCREASED
     Route: 048
     Dates: start: 20040301, end: 20050818
  4. EZETIMIBE [Interacting]
     Route: 048
     Dates: start: 20060101
  5. ACETYLSALICYLIC ACID + ASCORBIC ACID [Concomitant]
     Route: 048
     Dates: start: 19990101
  6. MULTIVITAMIN COMPLEX WITH VITAMIN A, E, C AND SELENIUM [Concomitant]
     Route: 048
     Dates: start: 20020101

REACTIONS (11)
  - ARTHRALGIA [None]
  - BLOOD LACTATE DEHYDROGENASE INCREASED [None]
  - CONSTIPATION [None]
  - DIZZINESS [None]
  - DRUG INTERACTION [None]
  - LOSS OF LIBIDO [None]
  - MUSCULAR WEAKNESS [None]
  - MYALGIA [None]
  - PAIN IN EXTREMITY [None]
  - SEXUAL DYSFUNCTION [None]
  - VERTIGO [None]
